FAERS Safety Report 9315302 (Version 1)
Quarter: 2013Q2

REPORT INFORMATION
  Report Type: Spontaneous
  Country: GB (occurrence: GB)
  Receive Date: 20130529
  Receipt Date: 20130529
  Transmission Date: 20140414
  Serious: Yes (Other)
  Sender: FDA-Public Use
  Company Number: GB-PFIZER INC-2013118742

PATIENT
  Age: 58 Year
  Sex: Male
  Weight: 83 kg

DRUGS (8)
  1. ZITHROMAX [Suspect]
     Indication: BRONCHOPULMONARY ASPERGILLOSIS ALLERGIC
     Dosage: 250 MG, 2X/DAY
     Route: 048
     Dates: start: 2012
  2. ZITHROMAX [Suspect]
     Indication: BRONCHIECTASIS
  3. ITRACONAZOLE [Concomitant]
     Dosage: ^200^; TWICE A DAY
     Route: 048
  4. LORATADINE [Concomitant]
     Dosage: ^10^, 1X/DAY
     Route: 048
  5. PREDNISOLONE [Concomitant]
     Dosage: ^6^, 1X/DAY
  6. SALMETEROL [Concomitant]
     Dosage: UNK
  7. SALBUTAMOL [Concomitant]
     Dosage: UNK
  8. FLUTICASONE [Concomitant]
     Dosage: UNK

REACTIONS (3)
  - Ventricular tachycardia [Not Recovered/Not Resolved]
  - Extrasystoles [Not Recovered/Not Resolved]
  - Cardiovascular disorder [Not Recovered/Not Resolved]
